FAERS Safety Report 7224860-4 (Version None)
Quarter: 2011Q1

REPORT INFORMATION
  Report Type: 
  Country: None (occurrence: None)
  Receive Date: 20110113
  Receipt Date: 20110105
  Transmission Date: 20110831
  Serious: Yes (Hospitalization)
  Sender: FDA-Public Use
  Company Number: US-AMGEN-USASP2011000777

PATIENT

DRUGS (4)
  1. NEULASTA [Suspect]
     Indication: NEUTROPENIA
  2. CYCLOPHOSPHAMIDE [Concomitant]
  3. ADRIAMYCIN PFS [Concomitant]
  4. TAXOTERE [Concomitant]

REACTIONS (1)
  - SHOCK [None]
